FAERS Safety Report 9608915 (Version 1)
Quarter: 2013Q4

REPORT INFORMATION
  Report Type: Spontaneous
  Country: IT (occurrence: FR)
  Receive Date: 20131009
  Receipt Date: 20131009
  Transmission Date: 20140711
  Serious: Yes (Hospitalization)
  Sender: FDA-Public Use
  Company Number: FR-FRI-1000049761

PATIENT
  Age: 73 Year
  Sex: Female

DRUGS (12)
  1. NEBIVOLOL [Suspect]
     Route: 048
     Dates: start: 201302
  2. KENZEN [Suspect]
     Route: 048
     Dates: start: 201203
  3. PLAVIX [Concomitant]
     Route: 048
  4. KARDEGIC [Concomitant]
     Route: 048
  5. COVERSYL [Concomitant]
     Route: 048
  6. GALVUS [Concomitant]
     Route: 048
  7. DIAMICRON [Concomitant]
     Route: 048
  8. TAHOR [Concomitant]
     Route: 048
  9. FUROSEMIDE [Concomitant]
     Route: 048
  10. ALPHAGAN [Concomitant]
     Route: 048
  11. CHIBRO CADRON [Concomitant]
  12. DEXAFREE [Concomitant]

REACTIONS (3)
  - Cutaneous lupus erythematosus [Not Recovered/Not Resolved]
  - Rash erythematous [Unknown]
  - Exfoliative rash [Unknown]
